FAERS Safety Report 14050586 (Version 3)
Quarter: 2017Q4

REPORT INFORMATION
  Report Type: Spontaneous
  Country: FR (occurrence: FR)
  Receive Date: 20171005
  Receipt Date: 20171102
  Transmission Date: 20180321
  Serious: Yes (Other)
  Sender: FDA-Public Use
  Company Number: FR-VERTEX PHARMACEUTICALS-2017-005350

PATIENT
  Age: 17 Year
  Sex: Female

DRUGS (10)
  1. FORLAX [Concomitant]
     Active Substance: POLYETHYLENE GLYCOL 4000
  2. CREON [Concomitant]
     Active Substance: PANCRELIPASE AMYLASE\PANCRELIPASE LIPASE\PANCRELIPASE PROTEASE
  3. PULMOZYME [Concomitant]
     Active Substance: DORNASE ALFA
  4. SYMBICORT [Concomitant]
     Active Substance: BUDESONIDE\FORMOTEROL FUMARATE DIHYDRATE
  5. ALVITYL                            /02362701/ [Concomitant]
  6. NASACORT [Concomitant]
     Active Substance: TRIAMCINOLONE ACETONIDE
  7. LEVEMIR [Concomitant]
     Active Substance: INSULIN DETEMIR
     Dosage: UNK
  8. ORKAMBI [Suspect]
     Active Substance: IVACAFTOR\LUMACAFTOR
     Indication: CYSTIC FIBROSIS
     Dosage: 2 DOSAGE FORM, BID
     Route: 048
     Dates: start: 20160221
  9. MOPRAL                             /00661201/ [Concomitant]
     Active Substance: OMEPRAZOLE SODIUM
  10. VENTOLIN [Concomitant]
     Active Substance: ALBUTEROL SULFATE

REACTIONS (1)
  - Benign neoplasm of lacrimal gland [Recovered/Resolved]

NARRATIVE: CASE EVENT DATE: 201612
